FAERS Safety Report 20666910 (Version 1)
Quarter: 2022Q2

REPORT INFORMATION
  Report Type: Spontaneous
  Country: US (occurrence: US)
  Receive Date: 20220403
  Receipt Date: 20220403
  Transmission Date: 20220720
  Serious: Yes (Other)
  Sender: FDA-Public Use
  Company Number: US-BRISTOL-MYERS SQUIBB COMPANY-2022-012221

PATIENT
  Age: 74 Year
  Sex: Male
  Weight: 93.893 kg

DRUGS (1)
  1. REVLIMID [Suspect]
     Active Substance: LENALIDOMIDE
     Indication: Plasma cell myeloma
     Dosage: FREQUENCY:3 WEEK, 1 WEEK OFF
     Route: 048

REACTIONS (1)
  - Neoplasm recurrence [Unknown]
